FAERS Safety Report 18404063 (Version 3)
Quarter: 2020Q4

REPORT INFORMATION
  Report Type: Report from Study
  Country: DE (occurrence: DE)
  Receive Date: 20201020
  Receipt Date: 20201119
  Transmission Date: 20210114
  Serious: Yes (Death, Hospitalization, Other)
  Sender: FDA-Public Use
  Company Number: DE-SHILPA MEDICARE LIMITED-SML-DE-2020-00380

PATIENT
  Age: 61 Year
  Sex: Female
  Weight: 53 kg

DRUGS (3)
  1. VARGATEF [Suspect]
     Active Substance: NINTEDANIB
     Indication: LUNG ADENOCARCINOMA
     Dosage: 200 MILLIGRAM BID
     Route: 065
     Dates: start: 20200708, end: 20200712
  2. VARGATEF [Suspect]
     Active Substance: NINTEDANIB
     Dosage: 200 MILLIGRAM BID
     Route: 065
     Dates: start: 20200719, end: 20200902
  3. DOCETAXEL, UNKNOWN [Suspect]
     Active Substance: DOCETAXEL
     Indication: LUNG ADENOCARCINOMA
     Dosage: FORM: LIQUID, DAILY DOSE: 75 MG/M2 BODY SURFACE AREA.
     Route: 065
     Dates: start: 20200707

REACTIONS (7)
  - Campylobacter infection [Not Recovered/Not Resolved]
  - Cerebrovascular accident [Fatal]
  - Hemiparesis [Fatal]
  - Cerebral infarction [Fatal]
  - White blood cell count decreased [Recovered/Resolved]
  - Anaemia [Not Recovered/Not Resolved]
  - Aphasia [Fatal]

NARRATIVE: CASE EVENT DATE: 20200711
